FAERS Safety Report 20441334 (Version 2)
Quarter: 2022Q1

REPORT INFORMATION
  Report Type: Other
  Country: GB (occurrence: GB)
  Receive Date: 20220208
  Receipt Date: 20220210
  Transmission Date: 20220423
  Serious: Yes (Other)
  Sender: FDA-Public Use
  Company Number: None

PATIENT
  Age: 51 Year
  Sex: Male
  Weight: 53 kg

DRUGS (168)
  1. CISPLATIN [Suspect]
     Active Substance: CISPLATIN
     Indication: Germ cell neoplasm
     Dosage: 79 MILLIGRAM, UNKNOWN (IN 1 LITER (NOT SPECIFIED)) (79 MG,1 IN 1 D)
     Route: 065
     Dates: start: 20200825
  2. DEXAMETHASONE [Suspect]
     Active Substance: DEXAMETHASONE
     Indication: Supportive care
     Dosage: 8 MILLIGRAM, QD FOR 3 DAYS, ORAL SOLUTIO
     Route: 048
     Dates: start: 20200825
  3. DEXAMETHASONE [Suspect]
     Active Substance: DEXAMETHASONE
     Dosage: 8 MILLIGRAM PER DAY (8 MG, 1X/DAY)
     Route: 048
     Dates: start: 20200825
  4. DEXAMETHASONE [Suspect]
     Active Substance: DEXAMETHASONE
     Dosage: 30 MILLIGRAM, QD, (30 MG, 1D)
     Route: 048
     Dates: start: 20200825
  5. ETOPOSIDE [Suspect]
     Active Substance: ETOPOSIDE
     Indication: Germ cell neoplasm
     Dosage: UNK
     Route: 065
     Dates: start: 202007
  6. ETOPOSIDE [Suspect]
     Active Substance: ETOPOSIDE
     Dosage: 360 MILLIGRAM, PER DAY (IN 1 LITER 2 BAGS)
     Route: 065
     Dates: start: 20200825, end: 20200825
  7. ETOPOSIDE [Suspect]
     Active Substance: ETOPOSIDE
     Dosage: 360 MILLIGRAM
     Route: 065
     Dates: start: 202007
  8. NAUZELIN [Suspect]
     Active Substance: DOMPERIDONE
     Indication: Supportive care
     Dosage: 30 MILLIGRAM, QD (PRN) (30 MG, QD (PRN (30 MG,1 D)) (30 MG,1 IN 1 D), TABLET
     Route: 048
     Dates: start: 20200825
  9. NAUZELIN [Suspect]
     Active Substance: DOMPERIDONE
     Dosage: 8 MILLIGRAM, QD (8 MG,1 IN 1 D), TABLET
     Route: 048
     Dates: start: 20200825
  10. NAUZELIN [Suspect]
     Active Substance: DOMPERIDONE
     Dosage: 30 MILLIGRAM, QD (30 MG, QD (PRN (30 MG,1 D)) (30 MG,1 IN 1 D), TABLET
     Route: 048
     Dates: start: 20200825
  11. NAUZELIN [Suspect]
     Active Substance: DOMPERIDONE
     Dosage: 30 MILLIGRAM PER DAY
     Route: 048
     Dates: start: 20200825
  12. NAUZELIN [Suspect]
     Active Substance: DOMPERIDONE
     Dosage: 8 MILLIGRAM PER DAY (8 MG,1 D), TABLET
     Route: 048
     Dates: start: 20200825
  13. NAUZELIN [Suspect]
     Active Substance: DOMPERIDONE
     Dosage: 8 MILLIGRAM PER DAY
     Route: 048
  14. NAUZELIN [Suspect]
     Active Substance: DOMPERIDONE
     Dosage: UNK
     Route: 065
  15. NAUZELIN [Suspect]
     Active Substance: DOMPERIDONE
     Dosage: UNK
     Route: 065
  16. NAUZELIN [Suspect]
     Active Substance: DOMPERIDONE
     Dosage: UNK
     Route: 065
     Dates: start: 20200825
  17. NAUZELIN [Suspect]
     Active Substance: DOMPERIDONE
     Dosage: UNK, TABLET
     Route: 065
     Dates: start: 20200825
  18. CHOLECALCIFEROL [Suspect]
     Active Substance: CHOLECALCIFEROL
     Indication: Mineral supplementation
     Dosage: 8 DOSAGE FORM, QD
     Route: 065
  19. CHOLECALCIFEROL [Suspect]
     Active Substance: CHOLECALCIFEROL
     Dosage: 2 DOSAGE FORM PER DAY, QD, TABLET
     Route: 065
  20. CHOLECALCIFEROL [Suspect]
     Active Substance: CHOLECALCIFEROL
     Dosage: 1 DOSAGE FORM, QD, TABLET (QD(UNK, QD, (UNK UNK, QD) )1 DF, QD
     Route: 065
  21. CHOLECALCIFEROL [Suspect]
     Active Substance: CHOLECALCIFEROL
     Dosage: 1 TABLETS, QD
     Route: 065
  22. CHOLECALCIFEROL [Suspect]
     Active Substance: CHOLECALCIFEROL
     Dosage: UNK, TABLET
     Route: 065
  23. CHOLECALCIFEROL [Suspect]
     Active Substance: CHOLECALCIFEROL
     Dosage: 1 DOSAGE FORM, QD, TABLET
     Route: 065
  24. CHOLECALCIFEROL [Suspect]
     Active Substance: CHOLECALCIFEROL
     Dosage: UNK, QD
     Route: 065
  25. CHOLECALCIFEROL [Suspect]
     Active Substance: CHOLECALCIFEROL
     Dosage: UNK, QD
     Route: 065
  26. CHOLECALCIFEROL [Suspect]
     Active Substance: CHOLECALCIFEROL
     Dosage: UNK
     Route: 048
  27. CHOLECALCIFEROL [Suspect]
     Active Substance: CHOLECALCIFEROL
     Dosage: UNK, TABLET
     Route: 065
  28. CHOLECALCIFEROL [Suspect]
     Active Substance: CHOLECALCIFEROL
     Dosage: UNK, TABLET 1 D
     Route: 065
  29. CHOLECALCIFEROL [Suspect]
     Active Substance: CHOLECALCIFEROL
     Dosage: UNK, 1 PER DAY, TABLET
     Route: 065
  30. CHOLECALCIFEROL [Suspect]
     Active Substance: CHOLECALCIFEROL
     Dosage: 8 DOSAGE FORM
     Route: 065
  31. CHOLECALCIFEROL [Suspect]
     Active Substance: CHOLECALCIFEROL
     Dosage: 1 DOSAGE FORM, QD
     Route: 065
  32. CHOLECALCIFEROL [Suspect]
     Active Substance: CHOLECALCIFEROL
     Dosage: 8 DOSAGE FORM PER DAY
     Route: 065
  33. CHOLECALCIFEROL [Suspect]
     Active Substance: CHOLECALCIFEROL
     Dosage: UNK 1 PER DAY
     Route: 065
  34. CHOLECALCIFEROL [Suspect]
     Active Substance: CHOLECALCIFEROL
     Dosage: UNK, 1 PER DAY
     Route: 065
  35. CHOLECALCIFEROL [Suspect]
     Active Substance: CHOLECALCIFEROL
     Dosage: UNK, 1 PER DAY
     Route: 065
  36. CHOLECALCIFEROL [Suspect]
     Active Substance: CHOLECALCIFEROL
     Dosage: 8 DOSAGE FORM, QD
     Route: 065
  37. CHOLECALCIFEROL [Suspect]
     Active Substance: CHOLECALCIFEROL
     Dosage: UNK (1 PER DAY)
     Route: 065
  38. CHOLECALCIFEROL [Suspect]
     Active Substance: CHOLECALCIFEROL
     Dosage: 1 DOSAGE FORM, TABLET
     Route: 065
  39. CHOLECALCIFEROL [Suspect]
     Active Substance: CHOLECALCIFEROL
     Dosage: DOSE 1, QD (1 D), TABLET
     Route: 065
  40. CHOLECALCIFEROL [Suspect]
     Active Substance: CHOLECALCIFEROL
     Dosage: DOSE 1 (UNSPECIFIED UNIT), TABLET
     Route: 065
  41. SODIUM CHLORIDE [Suspect]
     Active Substance: SODIUM CHLORIDE
     Indication: Medication dilution
     Dosage: 0.9 PERCENT
     Route: 065
     Dates: start: 20200825, end: 20200825
  42. SODIUM CHLORIDE [Suspect]
     Active Substance: SODIUM CHLORIDE
     Dosage: 0.9 PERCENT (SODIUM CHLORIDE INTRAVENOUS INFUSION BP 0.9% W/V (0.9 %))
     Route: 042
     Dates: start: 20200825, end: 20200825
  43. SODIUM CHLORIDE [Suspect]
     Active Substance: SODIUM CHLORIDE
     Dosage: UNK
     Route: 042
     Dates: start: 20200825, end: 20200825
  44. SODIUM CHLORIDE [Suspect]
     Active Substance: SODIUM CHLORIDE
     Dosage: 0.9 PERCENT
     Route: 065
     Dates: start: 20200825, end: 20200825
  45. SODIUM CHLORIDE [Suspect]
     Active Substance: SODIUM CHLORIDE
     Dosage: 0.9 PERCENT (SODIUM CHLORIDE INTRAVENOUS INFUSION BP 0.9% W/V (0.9 %))
     Route: 065
     Dates: start: 20200825, end: 20200825
  46. APREPITANT [Suspect]
     Active Substance: APREPITANT
     Indication: Supportive care
     Dosage: 125 MILLIGRAM, TOTAL (D1), CAPSULE, HARD (125 MG)
     Route: 065
     Dates: start: 20200825
  47. APREPITANT [Suspect]
     Active Substance: APREPITANT
     Indication: Mineral supplementation
     Dosage: 80 MILLIGRAM, SINGLE (D2)(IN TOTAL)
     Route: 065
     Dates: start: 20200825
  48. APREPITANT [Suspect]
     Active Substance: APREPITANT
     Dosage: 80 MILLIGRAM, CAPSULE HARD (80 MG)
     Route: 065
     Dates: start: 20200826
  49. APREPITANT [Suspect]
     Active Substance: APREPITANT
     Dosage: 80 MILLIGRAM, TOTAL (D2)
     Route: 065
     Dates: start: 20200826
  50. APREPITANT [Suspect]
     Active Substance: APREPITANT
     Dosage: 125 MILLIGRAM,(125 MG (D1) SINGLE (D1 (125 MG)/125 MG, 1X IN TOATAL), CAPSULE, HARD (125 MG)
     Route: 065
     Dates: start: 20200826
  51. APREPITANT [Suspect]
     Active Substance: APREPITANT
     Dosage: DOSE 1, 1 PER DAY, CAPSULE, HARD- UNK UNK, QD (1 IN 1 D)
     Route: 065
  52. APREPITANT [Suspect]
     Active Substance: APREPITANT
     Dosage: UNK (D1 (125 MG)/125 MG, 1X; IN TOTAL/D1)
     Route: 065
     Dates: start: 20200826
  53. APREPITANT [Suspect]
     Active Substance: APREPITANT
     Dosage: 125 MILLIGRAM D1
     Route: 065
     Dates: start: 20200826
  54. APREPITANT [Suspect]
     Active Substance: APREPITANT
     Dosage: 125 MILLIGRAM (125 MG, (D1 (125 MG)/125 MG, 1X; IN TOTAL/D1))
     Route: 065
     Dates: start: 20200825
  55. APREPITANT [Suspect]
     Active Substance: APREPITANT
     Dosage: 80 MILLIGRAM
     Route: 065
     Dates: start: 20200826
  56. APREPITANT [Suspect]
     Active Substance: APREPITANT
     Dosage: UNK (D1 (125 MG)/125 MG, 1X; IN TOTAL/D1)
     Route: 065
     Dates: start: 20200825
  57. APREPITANT [Suspect]
     Active Substance: APREPITANT
     Dosage: UNK, QD
     Route: 065
  58. APREPITANT [Suspect]
     Active Substance: APREPITANT
     Dosage: UNK
     Route: 065
  59. APREPITANT [Suspect]
     Active Substance: APREPITANT
     Dosage: 125 MILLIGRAM
     Route: 065
     Dates: start: 20200826
  60. APREPITANT [Suspect]
     Active Substance: APREPITANT
     Dosage: 125 MILLIGRAM
     Route: 065
     Dates: start: 20200826
  61. APREPITANT [Suspect]
     Active Substance: APREPITANT
     Dosage: 125 MILLIGRAM
     Route: 065
     Dates: start: 20200826
  62. APREPITANT [Suspect]
     Active Substance: APREPITANT
     Dosage: 125 MILLIGRAM
     Route: 065
     Dates: start: 20200826
  63. APREPITANT [Suspect]
     Active Substance: APREPITANT
     Dosage: 2 DOSAGE FORM PER DAY, TABLET
     Route: 065
  64. APREPITANT [Suspect]
     Active Substance: APREPITANT
     Dosage: 1 DOSAGE FORM, CAPSULE, HARD (1 DOSAGE FORMS,1 D)
     Route: 065
  65. THIAMINE [Suspect]
     Active Substance: THIAMINE
     Indication: Hypovitaminosis
     Dosage: 300 MILLIGRAM, QD (THIAMINE)
     Route: 065
  66. THIAMINE [Suspect]
     Active Substance: THIAMINE
     Indication: Nutritional supplementation
     Dosage: 1 DOSAGE FORM
     Route: 065
  67. THIAMINE [Suspect]
     Active Substance: THIAMINE
     Dosage: 300 MILLIGRAM, QD
     Route: 065
  68. THIAMINE [Suspect]
     Active Substance: THIAMINE
     Dosage: 300 MILLIGRAM, QD (THIAMINE NITRATE)
     Route: 065
  69. THIAMINE [Suspect]
     Active Substance: THIAMINE
     Dosage: 300 MILLIGRAM, QD
     Route: 065
  70. THIAMINE [Suspect]
     Active Substance: THIAMINE
     Dosage: UNK
     Route: 065
  71. THIAMINE [Suspect]
     Active Substance: THIAMINE
     Dosage: 1 DOSAGE FORM, QD (1 DF, 1 IN 1 D)
     Route: 065
  72. NICOTINE [Suspect]
     Active Substance: NICOTINE
     Indication: Drug therapy
     Dosage: 21 MILLIGRAM, QD (PATCH, EVERY 24 HOURS)
     Route: 065
  73. NICOTINE [Suspect]
     Active Substance: NICOTINE
     Dosage: 21 MILLIGRAM, QD (PATCH, EVERY 24 HOURS (21 MG,1 D) )
     Route: 065
  74. NICOTINE [Suspect]
     Active Substance: NICOTINE
     Dosage: 21 MILLIGRAM, QD (PATCH, EVERY 24 HOURS)
     Route: 065
  75. NICOTINE [Suspect]
     Active Substance: NICOTINE
     Dosage: 21 MILLIGRAM, QD (PATCH, EVERY 24 HOURS)
     Route: 065
  76. NICOTINE [Suspect]
     Active Substance: NICOTINE
     Dosage: 21 MILLIGRAM, QD (PATCH, EVERY 24 HOURS)
     Route: 065
  77. NICOTINE [Suspect]
     Active Substance: NICOTINE
     Dosage: 21 MILLIGRAM PER DAY, TRANSDERMAL PATCH, EVERY 24 HOURS (21 MG,1 IN 1 D)
     Route: 062
  78. NICOTINE [Suspect]
     Active Substance: NICOTINE
     Dosage: 21 MILLIGRAM PER DAY, TRANSDERMAL PATCH, EVERY 24 HOURS (21 MG,1 D)
     Route: 065
  79. ONDANSETRON [Suspect]
     Active Substance: ONDANSETRON
     Indication: Supportive care
     Dosage: 16 MILLIGRAM, QD (FOR 3 DAYS) 16 MG, QD, FOR 3 DAYS (16 MG, 1 D)/16 MG, QD (ORODISPERSIBLE FILM) (16
     Route: 048
     Dates: start: 20200825
  80. ENSURE [Suspect]
     Active Substance: AMINO ACIDS\DEXTROSE\ELECTROLYTES NOS\SOYBEAN OIL\VITAMINS
     Indication: Nutritional supplementation
     Dosage: 3 DOSAGE FORM, TABLETS 3 UNK
     Route: 065
  81. ENSURE [Suspect]
     Active Substance: AMINO ACIDS\DEXTROSE\ELECTROLYTES NOS\SOYBEAN OIL\VITAMINS
     Dosage: 1 DOSAGE FORM PER DAY
     Route: 065
  82. ENSURE [Suspect]
     Active Substance: AMINO ACIDS\DEXTROSE\ELECTROLYTES NOS\SOYBEAN OIL\VITAMINS
     Dosage: 1 DOSAGE FORM PER DAY (TABLETS)
     Route: 065
  83. ENSURE [Suspect]
     Active Substance: AMINO ACIDS\DEXTROSE\ELECTROLYTES NOS\SOYBEAN OIL\VITAMINS
     Dosage: 1 DOSAGE FORM, PER DAY (TABLETS)
     Route: 065
  84. ENSURE [Suspect]
     Active Substance: AMINO ACIDS\DEXTROSE\ELECTROLYTES NOS\SOYBEAN OIL\VITAMINS
     Dosage: 1 DOSAGE FORM, 1 DF TABLET
     Route: 065
  85. ENSURE [Suspect]
     Active Substance: AMINO ACIDS\DEXTROSE\ELECTROLYTES NOS\SOYBEAN OIL\VITAMINS
     Dosage: 1 DOSAGE FORM, QD
     Route: 065
  86. ENSURE [Suspect]
     Active Substance: AMINO ACIDS\DEXTROSE\ELECTROLYTES NOS\SOYBEAN OIL\VITAMINS
     Dosage: 3 DOSAGE FORM, TABLETS 3UNK
     Route: 065
  87. ENSURE [Suspect]
     Active Substance: AMINO ACIDS\DEXTROSE\ELECTROLYTES NOS\SOYBEAN OIL\VITAMINS
     Dosage: 1 DOSAGE FORM PER DAY
     Route: 065
  88. CALCIUM [Suspect]
     Active Substance: CALCIUM
     Indication: Mineral supplementation
     Dosage: UNK
     Route: 065
  89. CALCIUM [Suspect]
     Active Substance: CALCIUM
     Indication: Mineral supplementation
     Dosage: 8 DOSAGE FORM, QD
     Route: 065
  90. CALCIUM [Suspect]
     Active Substance: CALCIUM
     Indication: Nutritional supplementation
     Dosage: 1 DOSAGE FORM, QD
     Route: 065
  91. CALCIUM [Suspect]
     Active Substance: CALCIUM
     Dosage: 1 DOSAGE FORM, QD
     Route: 065
  92. CALCIUM [Suspect]
     Active Substance: CALCIUM
     Dosage: 8 DOSAGE FORM, QD 8 DF, QD (8 DOSAGE FORMS,1 IN 1 D) (8 DOSAGE FORMS,1 IN 1 D), TABLET
     Route: 065
  93. CALCIUM [Suspect]
     Active Substance: CALCIUM
     Dosage: 1 DOSAGE FORM, QD, TABLET
     Route: 065
  94. CALCIUM [Suspect]
     Active Substance: CALCIUM
     Dosage: 1 DOSAGE FORM  PER DAY
     Route: 065
  95. CALCIUM [Suspect]
     Active Substance: CALCIUM
     Dosage: 1 DOSAGE FORM, QD
     Route: 065
  96. CALCIUM [Suspect]
     Active Substance: CALCIUM
     Dosage: 1 DOSAGE FORM, QD
     Route: 065
  97. CALCIUM [Suspect]
     Active Substance: CALCIUM
     Dosage: 1 DOSAGE FORM, QD, TABLET
     Route: 065
  98. CALCIUM [Suspect]
     Active Substance: CALCIUM
     Dosage: UNK 1 PER DAY
     Route: 065
  99. CALCIUM [Suspect]
     Active Substance: CALCIUM
     Dosage: 8 DOSAGE FORM, QD
     Route: 065
  100. CALCIUM [Suspect]
     Active Substance: CALCIUM
     Dosage: 2 DOSAGE FORM PER DAY, TABLET
     Route: 065
  101. CALCIUM [Suspect]
     Active Substance: CALCIUM
     Dosage: 1 DOSAGE FORM PER DAY
     Route: 065
  102. CALCIUM [Suspect]
     Active Substance: CALCIUM
     Dosage: UNK 1PER DAY
     Route: 065
  103. CALCIUM [Suspect]
     Active Substance: CALCIUM
     Dosage: UNK 1PER DAY
     Route: 065
  104. CALCIUM [Suspect]
     Active Substance: CALCIUM
     Dosage: UNK, 1PER DAY
     Route: 065
  105. CALCIUM [Suspect]
     Active Substance: CALCIUM
     Dosage: UNK, QD
     Route: 065
  106. CALCIUM [Suspect]
     Active Substance: CALCIUM
     Dosage: UNK
     Route: 065
  107. CALCIUM [Suspect]
     Active Substance: CALCIUM
     Dosage: 2 DOSAGE FORM, QD
     Route: 065
  108. PHENYLBUTAZONE [Suspect]
     Active Substance: PHENYLBUTAZONE
     Indication: Hypovitaminosis
     Dosage: 300 MILLIGRAM, QD
     Route: 065
  109. PHENYLBUTAZONE [Suspect]
     Active Substance: PHENYLBUTAZONE
     Dosage: 300 MILLIGRAM, QD
     Route: 065
  110. PHENYLBUTAZONE [Suspect]
     Active Substance: PHENYLBUTAZONE
     Dosage: 300 MILLIGRAM, QD
     Route: 065
  111. PHENYLBUTAZONE [Suspect]
     Active Substance: PHENYLBUTAZONE
     Dosage: 300 MILLIGRAM PER DAY, (300 MG,1 IN 1 D)
     Route: 065
  112. PHENYLBUTAZONE [Suspect]
     Active Substance: PHENYLBUTAZONE
     Dosage: 80 DOSAGE FORM, CAPSULE HARD
     Route: 065
     Dates: start: 20200826
  113. PHENYLBUTAZONE [Suspect]
     Active Substance: PHENYLBUTAZONE
     Dosage: 80 MILLIGRAM, CAPSULE, HARD- 80 MG, (D2) SINGLE (IIN TOTAL) (80 MG)
     Route: 065
  114. PHENYLBUTAZONE [Suspect]
     Active Substance: PHENYLBUTAZONE
     Dosage: 300 MILLIGRAM PER DAY, (300 MG,1 IN 1 D)
     Route: 065
  115. PROPYPHENAZONE [Suspect]
     Active Substance: PROPYPHENAZONE
     Indication: Hypovitaminosis
     Dosage: 300 MILLIGRAM, QD (300 MG,1 IN 1 D)
     Route: 065
  116. PROPYPHENAZONE [Suspect]
     Active Substance: PROPYPHENAZONE
     Dosage: 300 MILLIGRAM
     Route: 065
  117. PROPYPHENAZONE [Suspect]
     Active Substance: PROPYPHENAZONE
     Dosage: 300 MILLIGRAM, QD
     Route: 065
  118. PROPYPHENAZONE [Suspect]
     Active Substance: PROPYPHENAZONE
     Dosage: 300 MILLIGRAM, QD
     Route: 065
  119. PROPYPHENAZONE [Suspect]
     Active Substance: PROPYPHENAZONE
     Dosage: 300 MILLIGRAM, QD
     Route: 065
  120. PROPYPHENAZONE [Suspect]
     Active Substance: PROPYPHENAZONE
     Dosage: UNK
     Route: 065
  121. THIAMINE MONONITRATE [Suspect]
     Active Substance: THIAMINE MONONITRATE
     Indication: Hypovitaminosis
     Dosage: 300 MILLIGRAM, PER DAY (300 MG,1 IN 1 D)
     Route: 065
  122. THIAMINE MONONITRATE [Suspect]
     Active Substance: THIAMINE MONONITRATE
     Dosage: 300 MILLIGRAM PER DAY
     Route: 065
  123. CALCIUM CARBONATE\CHOLECALCIFEROL [Suspect]
     Active Substance: CALCIUM CARBONATE\CHOLECALCIFEROL
     Indication: Mineral supplementation
     Dosage: 2 DOSAGE FORM, QD
     Route: 048
  124. CALCIUM CARBONATE\CHOLECALCIFEROL [Suspect]
     Active Substance: CALCIUM CARBONATE\CHOLECALCIFEROL
     Dosage: UNK
     Route: 065
  125. CALCIUM CARBONATE\CHOLECALCIFEROL [Suspect]
     Active Substance: CALCIUM CARBONATE\CHOLECALCIFEROL
     Dosage: 1 DOSAGE FORM, QD
     Route: 048
  126. CALCIUM CARBONATE\CHOLECALCIFEROL [Suspect]
     Active Substance: CALCIUM CARBONATE\CHOLECALCIFEROL
     Dosage: 1 DOSAGE FORM, TABLET
     Route: 048
  127. CALCIUM CARBONATE\CHOLECALCIFEROL [Suspect]
     Active Substance: CALCIUM CARBONATE\CHOLECALCIFEROL
     Dosage: 1 DOSAGE FORM 1 TABLET PER ONE DAY
     Route: 065
  128. CALCIUM CARBONATE\CHOLECALCIFEROL [Suspect]
     Active Substance: CALCIUM CARBONATE\CHOLECALCIFEROL
     Dosage: 2 DOSAGE FORM, 2 TABLETS
     Route: 065
  129. CALCIUM CARBONATE\CHOLECALCIFEROL [Suspect]
     Active Substance: CALCIUM CARBONATE\CHOLECALCIFEROL
     Dosage: 1 DOSAGE FORM, QD , TABLET
     Route: 065
  130. CALCIUM CARBONATE\CHOLECALCIFEROL [Suspect]
     Active Substance: CALCIUM CARBONATE\CHOLECALCIFEROL
     Dosage: 1 DOSAGE FORM, QD
     Route: 065
  131. CALCIUM CARBONATE\CHOLECALCIFEROL [Suspect]
     Active Substance: CALCIUM CARBONATE\CHOLECALCIFEROL
     Dosage: 2 DOSAGE FORM, QD QD (2 DF, QD (TABLET), TABLET 2UNK)
     Route: 065
  132. CALCIUM CARBONATE\CHOLECALCIFEROL [Suspect]
     Active Substance: CALCIUM CARBONATE\CHOLECALCIFEROL
     Dosage: 1 DOSAGE FORM PER DAY
     Route: 065
  133. CALCIUM CARBONATE\CHOLECALCIFEROL [Suspect]
     Active Substance: CALCIUM CARBONATE\CHOLECALCIFEROL
     Dosage: 2 DOSAGE FORM PER DAY
     Route: 065
  134. CALCIUM CARBONATE\CHOLECALCIFEROL [Suspect]
     Active Substance: CALCIUM CARBONATE\CHOLECALCIFEROL
     Dosage: UNK
     Route: 065
  135. CALCIUM CARBONATE\CHOLECALCIFEROL [Suspect]
     Active Substance: CALCIUM CARBONATE\CHOLECALCIFEROL
     Dosage: UNK 1 PER DAY
     Route: 065
  136. CALCIUM CARBONATE\CHOLECALCIFEROL [Suspect]
     Active Substance: CALCIUM CARBONATE\CHOLECALCIFEROL
     Dosage: UNK
     Route: 065
  137. CALCIUM CARBONATE\CHOLECALCIFEROL [Suspect]
     Active Substance: CALCIUM CARBONATE\CHOLECALCIFEROL
     Dosage: UNK (PER DAY)
     Route: 065
  138. CALCIUM CARBONATE\CHOLECALCIFEROL [Suspect]
     Active Substance: CALCIUM CARBONATE\CHOLECALCIFEROL
     Dosage: UNK (1 PER DAY)
     Route: 065
  139. CALCIUM CARBONATE\CHOLECALCIFEROL [Suspect]
     Active Substance: CALCIUM CARBONATE\CHOLECALCIFEROL
     Dosage: UNK
     Route: 065
  140. CALCIUM\CHOLECALCIFEROL [Suspect]
     Active Substance: CALCIUM\CHOLECALCIFEROL
     Indication: Mineral supplementation
     Dosage: 8 DOSAGE FORM, QD
     Route: 065
  141. CALCIUM\CHOLECALCIFEROL [Suspect]
     Active Substance: CALCIUM\CHOLECALCIFEROL
     Dosage: UNK, 1 PER DAY (QD)
     Route: 065
  142. CALCIUM\CHOLECALCIFEROL [Suspect]
     Active Substance: CALCIUM\CHOLECALCIFEROL
     Dosage: UNK, 1 PER DAY (QD)
     Route: 065
  143. CALCIUM\CHOLECALCIFEROL [Suspect]
     Active Substance: CALCIUM\CHOLECALCIFEROL
     Dosage: 8 DOSAGE FORM, QD
     Route: 065
  144. CALCIUM\CHOLECALCIFEROL [Suspect]
     Active Substance: CALCIUM\CHOLECALCIFEROL
     Dosage: 1 DOSAGE FORM PER DAY
     Route: 065
  145. CALCIUM\CHOLECALCIFEROL [Suspect]
     Active Substance: CALCIUM\CHOLECALCIFEROL
     Dosage: UNK
     Route: 065
  146. CALCIUM\CHOLECALCIFEROL [Suspect]
     Active Substance: CALCIUM\CHOLECALCIFEROL
     Dosage: UNK, 1 PER DAY
     Route: 065
  147. CALCIUM\CHOLECALCIFEROL [Suspect]
     Active Substance: CALCIUM\CHOLECALCIFEROL
     Dosage: UNK, 1 PER DAY
     Route: 065
  148. CALCIUM\CHOLECALCIFEROL [Suspect]
     Active Substance: CALCIUM\CHOLECALCIFEROL
     Dosage: 2 DOSAGE FORM PER DAY
     Route: 065
  149. CALCIUM\CHOLECALCIFEROL [Suspect]
     Active Substance: CALCIUM\CHOLECALCIFEROL
     Dosage: 2 DOSAGE FORM, QD
     Route: 065
  150. CALCIUM\CHOLECALCIFEROL [Suspect]
     Active Substance: CALCIUM\CHOLECALCIFEROL
     Dosage: 1 DOSAGE FORM
     Route: 065
  151. CALCIUM\CHOLECALCIFEROL [Suspect]
     Active Substance: CALCIUM\CHOLECALCIFEROL
     Dosage: UNK
     Route: 065
  152. DOMPERIDONE MALEATE [Suspect]
     Active Substance: DOMPERIDONE MALEATE
     Indication: Supportive care
     Dosage: 8 MILLIGRAM, QD
     Route: 048
     Dates: start: 20200825
  153. DOMPERIDONE MALEATE [Suspect]
     Active Substance: DOMPERIDONE MALEATE
     Dosage: 30 MILLIGRAM, QD
     Route: 048
     Dates: start: 20200825
  154. DOMPERIDONE MALEATE [Suspect]
     Active Substance: DOMPERIDONE MALEATE
     Dosage: UNK
     Route: 065
  155. TRIBASIC CALCIUM PHOSPHATE [Suspect]
     Active Substance: TRIBASIC CALCIUM PHOSPHATE
     Indication: Mineral supplementation
     Dosage: UNK
     Route: 065
  156. TRIBASIC CALCIUM PHOSPHATE [Suspect]
     Active Substance: TRIBASIC CALCIUM PHOSPHATE
     Dosage: 8 DOSAGE FORM
     Route: 065
  157. UNSPECIFIED INGREDIENT [Suspect]
     Active Substance: UNSPECIFIED INGREDIENT
     Indication: Nutritional supplementation
     Dosage: UNK, QD
     Route: 065
  158. UNSPECIFIED INGREDIENT [Suspect]
     Active Substance: UNSPECIFIED INGREDIENT
     Dosage: UNK, QD
     Route: 065
  159. UNSPECIFIED INGREDIENT [Suspect]
     Active Substance: UNSPECIFIED INGREDIENT
     Dosage: UNK
     Route: 065
  160. UNSPECIFIED INGREDIENT [Suspect]
     Active Substance: UNSPECIFIED INGREDIENT
     Dosage: UNK, QD
     Route: 065
  161. UNSPECIFIED INGREDIENT [Suspect]
     Active Substance: UNSPECIFIED INGREDIENT
     Dosage: UNK
     Route: 065
  162. UNSPECIFIED INGREDIENT [Suspect]
     Active Substance: UNSPECIFIED INGREDIENT
     Dosage: UNK, QD
     Route: 065
  163. UNSPECIFIED INGREDIENT [Suspect]
     Active Substance: UNSPECIFIED INGREDIENT
     Dosage: UNK, QD
     Route: 065
  164. UNSPECIFIED INGREDIENT [Suspect]
     Active Substance: UNSPECIFIED INGREDIENT
     Dosage: 1 DOSAGE FORM, QD
     Route: 065
  165. UNSPECIFIED INGREDIENT [Suspect]
     Active Substance: UNSPECIFIED INGREDIENT
     Dosage: 3 DOSAGE FORM, QD
     Route: 065
  166. UNSPECIFIED INGREDIENT [Suspect]
     Active Substance: UNSPECIFIED INGREDIENT
     Dosage: 3 DOSAGE FORM, 1 IN 1D, TABLET
     Route: 065
  167. ARCOXIA [Suspect]
     Active Substance: ETORICOXIB
     Indication: Product used for unknown indication
     Dosage: UNK
     Route: 065
  168. COCODAMOL [Suspect]
     Active Substance: ACETAMINOPHEN\CODEINE PHOSPHATE
     Indication: Product used for unknown indication
     Dosage: UNK
     Route: 065

REACTIONS (10)
  - Barrett^s oesophagus [Unknown]
  - Abdominal distension [Unknown]
  - Vitamin B12 deficiency [Unknown]
  - Condition aggravated [Unknown]
  - Regurgitation [Unknown]
  - Dyspepsia [Unknown]
  - Oropharyngeal discomfort [Unknown]
  - Eructation [Unknown]
  - Neck pain [Unknown]
  - Hypersensitivity [Recovered/Resolved]
